FAERS Safety Report 12416415 (Version 9)
Quarter: 2017Q1

REPORT INFORMATION
  Report Type: Report from Study
  Country: JP (occurrence: JP)
  Receive Date: 20160530
  Receipt Date: 20170315
  Transmission Date: 20170428
  Serious: Yes (Hospitalization)
  Sender: FDA-Public Use
  Company Number: PHHY2016JP071637

PATIENT
  Age: 58 Year
  Sex: Male
  Weight: 67 kg

DRUGS (9)
  1. LOXOPROFEN SODIUM [Concomitant]
     Active Substance: LOXOPROFEN SODIUM
     Indication: RHEUMATOID ARTHRITIS
     Dosage: 60 MG, QD
     Route: 065
     Dates: start: 20150107
  2. ALENDRONATE [Concomitant]
     Active Substance: ALENDRONATE SODIUM
     Indication: OSTEOPOROSIS PROPHYLAXIS
     Dosage: 35 MG, QD
     Route: 065
     Dates: start: 2010
  3. PREDONINE [Suspect]
     Active Substance: PREDNISOLONE
     Indication: RHEUMATOID ARTHRITIS
     Dosage: 5 MG, QD
     Route: 048
     Dates: start: 201404
  4. FOLIAMIN [Concomitant]
     Active Substance: FOLIC ACID
     Indication: PROPHYLAXIS
     Dosage: 5 MG, QW
     Route: 065
     Dates: start: 20150107, end: 20160418
  5. TEPRENONE [Concomitant]
     Active Substance: TEPRENONE
     Indication: GASTRITIS PROPHYLAXIS
     Dosage: 50 MG, QD
     Route: 065
     Dates: start: 201501
  6. INFLIXIMAB [Suspect]
     Active Substance: INFLIXIMAB
     Indication: RHEUMATOID ARTHRITIS
     Dosage: UNK MG/KG, UNK
     Route: 065
     Dates: start: 20150202, end: 20160425
  7. INFLIXIMAB [Suspect]
     Active Substance: INFLIXIMAB
     Dosage: 201.0 MG (IN 30 AND 38 WEEKS)
     Route: 042
     Dates: start: 20150602
  8. INFLIXIMAB [Suspect]
     Active Substance: INFLIXIMAB
     Dosage: 3 MG/KG (IN WEEKS 0, 2, 6, 14 AND 22)
     Route: 042
     Dates: start: 20150602, end: 20160223
  9. METHOTREXATE CAPSULE [Suspect]
     Active Substance: METHOTREXATE
     Indication: RHEUMATOID ARTHRITIS
     Dosage: 12 MG, QW
     Route: 048
     Dates: start: 2008, end: 20160418

REACTIONS (1)
  - Pulmonary mass [Recovering/Resolving]

NARRATIVE: CASE EVENT DATE: 20160418
